FAERS Safety Report 20495361 (Version 1)
Quarter: 2022Q1

REPORT INFORMATION
  Report Type: Spontaneous
  Country: US (occurrence: US)
  Receive Date: 20220221
  Receipt Date: 20220221
  Transmission Date: 20220423
  Serious: Yes (Disabling, Other)
  Sender: FDA-Public Use
  Company Number: US-SANOFI-00977443

PATIENT
  Sex: Female

DRUGS (1)
  1. SOLIQUA 100/33 [Suspect]
     Active Substance: INSULIN GLARGINE\LIXISENATIDE

REACTIONS (7)
  - Spinal cord disorder [Unknown]
  - Impaired work ability [Unknown]
  - Injection site pain [Unknown]
  - Diabetic neuropathy [Unknown]
  - Peripheral swelling [Unknown]
  - Pain in extremity [Unknown]
  - Oedema peripheral [Unknown]
